FAERS Safety Report 25553657 (Version 2)
Quarter: 2025Q3

REPORT INFORMATION
  Report Type: Report from Study
  Country: US (occurrence: US)
  Receive Date: 20250715
  Receipt Date: 20250804
  Transmission Date: 20251021
  Serious: Yes (Other)
  Sender: ABBVIE
  Company Number: US-ABBVIE-6368025

PATIENT
  Age: 68 Year
  Sex: Male

DRUGS (1)
  1. SKYRIZI [Suspect]
     Active Substance: RISANKIZUMAB-RZAA
     Indication: Psoriasis
     Route: 058
     Dates: start: 20221128

REACTIONS (3)
  - Rash papular [Unknown]
  - Sebaceous hyperplasia [Not Recovered/Not Resolved]
  - Milia [Not Recovered/Not Resolved]

NARRATIVE: CASE EVENT DATE: 20250101
